FAERS Safety Report 5527887-3 (Version None)
Quarter: 2007Q4

REPORT INFORMATION
  Report Type: 
  Country: None (occurrence: None)
  Receive Date: 20071128
  Receipt Date: 20071123
  Transmission Date: 20080405
  Serious: Yes (Death, Hospitalization)
  Sender: FDA-Public Use
  Company Number: CH-JNJFOC-20071109032

PATIENT
  Age: 83 Year
  Sex: Male
  Weight: 80 kg

DRUGS (3)
  1. HALDOL [Suspect]
     Indication: AGITATION
     Route: 048
  2. CITALOPRAM [Concomitant]
     Route: 048
  3. LEXOTANIL [Concomitant]
     Route: 048

REACTIONS (5)
  - ERYTHEMA [None]
  - FEMORAL ARTERY OCCLUSION [None]
  - NEUROLEPTIC MALIGNANT SYNDROME [None]
  - PANNICULITIS [None]
  - PLEURAL EFFUSION [None]
